FAERS Safety Report 7323860-3 (Version None)
Quarter: 2011Q1

REPORT INFORMATION
  Report Type: 
  Country: None (occurrence: None)
  Receive Date: 20110301
  Receipt Date: 20110221
  Transmission Date: 20110831
  Serious: Yes (Other)
  Sender: FDA-Public Use
  Company Number: A0915350A

PATIENT
  Sex: Male

DRUGS (2)
  1. LAMICTAL [Suspect]
  2. LAMOTRIGINE [Suspect]
     Route: 065

REACTIONS (7)
  - DIZZINESS [None]
  - HEADACHE [None]
  - OSTEOLYSIS [None]
  - TOOTH LOSS [None]
  - MALAISE [None]
  - OSTEOPOROSIS [None]
  - RENAL CANCER [None]
